FAERS Safety Report 18873959 (Version 1)
Quarter: 2021Q1

REPORT INFORMATION
  Report Type: Spontaneous
  Country: US (occurrence: US)
  Receive Date: 20210210
  Receipt Date: 20210210
  Transmission Date: 20210420
  Serious: No
  Sender: FDA-Public Use
  Company Number: US-PFIZER INC-2020390520

PATIENT
  Age: 68 Year
  Sex: Female

DRUGS (3)
  1. MORPHINE [Concomitant]
     Active Substance: MORPHINE
     Dosage: 15 MG
  2. MORPHINE [Concomitant]
     Active Substance: MORPHINE
     Dosage: 90 MG
  3. IBRANCE [Suspect]
     Active Substance: PALBOCICLIB
     Dosage: 125 MG

REACTIONS (2)
  - Alopecia [Not Recovered/Not Resolved]
  - Neoplasm progression [Unknown]
